FAERS Safety Report 7605134-6 (Version None)
Quarter: 2011Q3

REPORT INFORMATION
  Report Type: 
  Country: None (occurrence: None)
  Receive Date: 20110713
  Receipt Date: 20110120
  Transmission Date: 20111222
  Serious: Yes (Hospitalization, Other)
  Sender: FDA-Public Use
  Company Number: US-BAYER-200837861NA

PATIENT
  Age: 70 Year
  Sex: Male
  Weight: 93 kg

DRUGS (39)
  1. TRASYLOL [Suspect]
     Indication: MITRAL VALVE REPAIR
     Dosage: 200 ML LOADING DOSE
     Dates: start: 20060803, end: 20060803
  2. LOPRESSOR [Concomitant]
     Dosage: 50 MG, BID
     Route: 048
  3. LANTUS [Concomitant]
     Dosage: INJECTION
  4. FLOMAX [Concomitant]
     Route: 048
  5. LIDOCAINE [Concomitant]
     Dosage: 100 ML
     Dates: start: 20060803, end: 20060803
  6. OXACILLIN [Concomitant]
  7. CONTRAST MEDIA [Concomitant]
     Indication: COMPUTERISED TOMOGRAM
     Dosage: UNK
     Dates: start: 20060710, end: 20060710
  8. TRASYLOL [Suspect]
     Indication: VASCULAR GRAFT
     Dosage: 50 ML/HR
     Route: 042
     Dates: start: 20060803, end: 20060803
  9. CALCIUM CHLORIDE [Concomitant]
     Dosage: 1 G, UNK
     Route: 042
  10. AMIODARONE HCL [Concomitant]
     Dosage: 150 MG, UNK
     Route: 042
  11. PRAVASTATIN [Concomitant]
     Route: 048
  12. MIDAZOLAM HCL [Concomitant]
     Dosage: 2 MG, UNK
     Route: 042
  13. SODIUM BICARBONATE [Concomitant]
     Dosage: 50 MG
     Dates: start: 20060803, end: 20060803
  14. FRESH FROZEN PLASMA [Concomitant]
     Dosage: 2 U, UNK
     Dates: start: 20060803
  15. PITRESSIN [Concomitant]
     Dosage: 4 U/HOUR
     Route: 042
     Dates: start: 20060803
  16. RED BLOOD CELLS [Concomitant]
     Dosage: 625 CCS
     Route: 042
     Dates: start: 20060803, end: 20060803
  17. TRASYLOL [Suspect]
     Indication: AORTIC VALVE REPLACEMENT
     Dosage: 1 ML TEST DOSE
     Dates: start: 20060803, end: 20060803
  18. IMDUR [Concomitant]
     Route: 048
  19. RED BLOOD CELLS [Concomitant]
     Dosage: 3 U, UNK
     Dates: start: 20060803
  20. MAXIPIME [Concomitant]
  21. CONTRAST MEDIA [Concomitant]
     Dosage: UNK
     Dates: start: 20060714, end: 20060714
  22. PAVULON [Concomitant]
     Dosage: 10 MG
     Route: 042
     Dates: start: 20060803, end: 20060803
  23. DOBUTAMINE HCL [Concomitant]
     Dosage: UNK
     Route: 042
     Dates: start: 20060803
  24. HEPARIN [Concomitant]
     Dosage: 30000 U, UNK
  25. HEPARIN [Concomitant]
     Dosage: 40000 U
     Route: 042
     Dates: start: 20060803, end: 20060803
  26. LASIX [Concomitant]
     Dosage: 40 MG
     Route: 042
     Dates: start: 20060803, end: 20060803
  27. CONTRAST MEDIA [Concomitant]
     Indication: CATHETERISATION CARDIAC
     Dosage: UNK
     Dates: start: 20060711, end: 20060711
  28. PROTAMINE SULFATE [Concomitant]
     Dosage: 280 MG
     Route: 042
     Dates: start: 20060803, end: 20060803
  29. RANEXA [Concomitant]
     Dosage: 500 MG, UNK
     Route: 048
  30. SYNTHROID [Concomitant]
     Route: 048
  31. LIPITOR [Concomitant]
  32. BETHANECHOL [Concomitant]
     Route: 048
  33. VANCOMYCIN [Concomitant]
  34. SODIUM BICARBONATE [Concomitant]
     Dosage: 1AMP IV
     Route: 042
  35. CONTRAST MEDIA [Concomitant]
     Dosage: UNK
  36. CEFAZOLIN [Concomitant]
     Dosage: 3 G
     Route: 042
     Dates: start: 20060803, end: 20060803
  37. EPINEPHRINE [Concomitant]
     Dosage: UNK
     Route: 042
     Dates: start: 20060803
  38. ROBINUL [Concomitant]
     Dosage: 02 MG, UNK
     Route: 042
  39. NOVOLIN R [Concomitant]
     Route: 042

REACTIONS (7)
  - UNEVALUABLE EVENT [None]
  - ANXIETY [None]
  - EMOTIONAL DISTRESS [None]
  - RENAL FAILURE [None]
  - PAIN [None]
  - RENAL INJURY [None]
  - INJURY [None]
